FAERS Safety Report 4433464-8 (Version None)
Quarter: 2004Q3

REPORT INFORMATION
  Report Type: 
  Country: None (occurrence: None)
  Receive Date: 20040824
  Receipt Date: 20040812
  Transmission Date: 20050211
  Serious: Yes (Hospitalization)
  Sender: FDA-Public Use
  Company Number: 208025

PATIENT
  Age: 47 Year
  Sex: Female
  Weight: 60.3 kg

DRUGS (5)
  1. HERCEPTIN [Suspect]
     Indication: BREAST CANCER
     Dosage: 2 MG/KG, 1/WEEK, INTRAVENOUS
     Route: 042
     Dates: start: 20040511
  2. CARBOPLATIN [Concomitant]
  3. TAXOTERE [Concomitant]
  4. NEULASTA (PEGFILGRASTIN) [Concomitant]
  5. ARANESP [Concomitant]

REACTIONS (5)
  - BLOOD CREATINE PHOSPHOKINASE INCREASED [None]
  - GENERALISED OEDEMA [None]
  - HYPOALBUMINAEMIA [None]
  - MYALGIA [None]
  - MYOSITIS [None]
